FAERS Safety Report 16190930 (Version 1)
Quarter: 2019Q2

REPORT INFORMATION
  Report Type: Spontaneous
  Country: US (occurrence: US)
  Receive Date: 20190412
  Receipt Date: 20190412
  Transmission Date: 20190711
  Serious: Yes (Other)
  Sender: FDA-Public Use
  Company Number: US-TEVA-2019-US-1035238

PATIENT
  Sex: Male

DRUGS (3)
  1. WARFARIN [Suspect]
     Active Substance: WARFARIN
     Route: 065
  2. TORASEMIDE [Suspect]
     Active Substance: TORSEMIDE
     Route: 065
  3. ELIQUIS [Suspect]
     Active Substance: APIXABAN
     Route: 065

REACTIONS (3)
  - Pruritus [Unknown]
  - Skin abrasion [Unknown]
  - Cardiac failure [Recovering/Resolving]
